FAERS Safety Report 21009387 (Version 1)
Quarter: 2022Q2

REPORT INFORMATION
  Report Type: Spontaneous
  Country: US (occurrence: None)
  Receive Date: 20220624
  Receipt Date: 20220624
  Transmission Date: 20220721
  Serious: Yes (Other)
  Sender: FDA-Public Use
  Company Number: None

PATIENT
  Age: 73 Year
  Sex: Female
  Weight: 64.35 kg

DRUGS (3)
  1. ROSUVASTATIN [Suspect]
     Active Substance: ROSUVASTATIN
     Indication: Blood cholesterol
     Dosage: OTHER QUANTITY : 1 TABLET(S);?FREQUENCY : DAILY;?
  2. LATANOPROST [Concomitant]
     Active Substance: LATANOPROST
  3. TRAMADOL [Concomitant]
     Active Substance: TRAMADOL

REACTIONS (31)
  - Asthenia [None]
  - Grip strength decreased [None]
  - Urinary incontinence [None]
  - Arthralgia [None]
  - Arthralgia [None]
  - Arthralgia [None]
  - Movement disorder [None]
  - Fall [None]
  - Chest pain [None]
  - Myalgia [None]
  - Vision blurred [None]
  - Chest discomfort [None]
  - Dry mouth [None]
  - Heart rate irregular [None]
  - Dry skin [None]
  - Thirst [None]
  - Pollakiuria [None]
  - Nausea [None]
  - Abdominal pain upper [None]
  - Dyspnoea [None]
  - Fatigue [None]
  - Gingival bleeding [None]
  - Abdominal distension [None]
  - Pruritus [None]
  - Faeces pale [None]
  - Dysphonia [None]
  - Peripheral swelling [None]
  - Peripheral swelling [None]
  - Dysphagia [None]
  - Balance disorder [None]
  - Formication [None]
